FAERS Safety Report 21711800 (Version 1)
Quarter: 2022Q4

REPORT INFORMATION
  Report Type: Report from Study
  Country: US (occurrence: US)
  Receive Date: 20221212
  Receipt Date: 20221212
  Transmission Date: 20230112
  Serious: No
  Sender: FDA-Public Use
  Company Number: US-ABBVIE-4175285

PATIENT
  Sex: Female

DRUGS (2)
  1. HUMIRA [Suspect]
     Active Substance: ADALIMUMAB
     Indication: Product used for unknown indication
     Route: 058
     Dates: end: 20210310
  2. HUMIRA [Suspect]
     Active Substance: ADALIMUMAB
     Dosage: DOUBLING DOSE
     Route: 058
     Dates: start: 202210

REACTIONS (1)
  - Therapeutic product effect incomplete [Recovered/Resolved]
